FAERS Safety Report 6401477-2 (Version None)
Quarter: 2009Q4

REPORT INFORMATION
  Report Type: 
  Country: None (occurrence: None)
  Receive Date: 20091015
  Receipt Date: 20091012
  Transmission Date: 20100525
  Serious: Yes (Hospitalization, Other)
  Sender: FDA-Public Use
  Company Number: FR-BRISTOL-MYERS SQUIBB COMPANY-14815807

PATIENT
  Age: 67 Year
  Sex: Female

DRUGS (11)
  1. APROVEL TABS 300 MG [Suspect]
     Indication: HYPERTENSION
     Dosage: APROVEL DOSE FROM 300 MG/D TO 150 MG/D
  2. BYETTA [Suspect]
     Indication: TYPE 2 DIABETES MELLITUS
     Dosage: BYETTA DOSE FROM 10 ?G/D TO 5 ?G/D
  3. LASILIX [Suspect]
     Indication: HYPERTENSION
     Dosage: DECREASED FROM 40 MG/D TO 20 MG/D
  4. KARDEGIC [Concomitant]
  5. AMIODARONE [Concomitant]
  6. TARDYFERON [Concomitant]
  7. NOVONORM [Concomitant]
  8. LOXEN [Concomitant]
  9. CRESTOR [Concomitant]
  10. LEVOTHYROXINE SODIUM [Concomitant]
  11. NEXIUM [Concomitant]

REACTIONS (2)
  - GAMMOPATHY [None]
  - RENAL FAILURE ACUTE [None]
